FAERS Safety Report 7383717-9 (Version None)
Quarter: 2011Q1

REPORT INFORMATION
  Report Type: 
  Country: None (occurrence: None)
  Receive Date: 20110330
  Receipt Date: 20110322
  Transmission Date: 20110831
  Serious: Yes (Death, Hospitalization)
  Sender: FDA-Public Use
  Company Number: GB-JNJFOC-20110308740

PATIENT
  Sex: Male

DRUGS (11)
  1. RALTEGRAVIR [Concomitant]
     Indication: PRODUCT USED FOR UNKNOWN INDICATION
     Route: 065
  2. ETRAVIRINE [Concomitant]
     Indication: HIV INFECTION
     Route: 065
  3. PREZISTA [Suspect]
     Route: 048
  4. CELSENTRI [Suspect]
     Route: 048
  5. RITONAVIR [Suspect]
     Route: 065
  6. RITONAVIR [Suspect]
     Indication: HIV INFECTION
     Route: 065
  7. KALETRA [Concomitant]
     Indication: PRODUCT USED FOR UNKNOWN INDICATION
     Route: 065
  8. ZIDOVUDINE [Concomitant]
     Indication: PRODUCT USED FOR UNKNOWN INDICATION
     Route: 065
  9. PREZISTA [Suspect]
     Indication: HIV INFECTION
     Route: 048
  10. CELSENTRI [Suspect]
     Indication: HIV INFECTION
     Route: 048
  11. RALTEGRAVIR [Concomitant]
     Route: 065

REACTIONS (5)
  - BRONCHOPNEUMONIA [None]
  - CHEST PAIN [None]
  - MALAISE [None]
  - PULMONARY EMBOLISM [None]
  - DYSPNOEA [None]
